FAERS Safety Report 6165482-6 (Version None)
Quarter: 2009Q2

REPORT INFORMATION
  Report Type: 
  Country: None (occurrence: None)
  Receive Date: 20090423
  Receipt Date: 20090415
  Transmission Date: 20091009
  Serious: Yes (Death)
  Sender: FDA-Public Use
  Company Number: VN-BAXTER-2009BH006187

PATIENT
  Sex: Female

DRUGS (1)
  1. DIANEAL [Suspect]
     Indication: PERITONEAL DIALYSIS
     Route: 033
     Dates: start: 20070822

REACTIONS (3)
  - CARDIAC FAILURE [None]
  - DIABETES MELLITUS [None]
  - HYPERTENSION [None]
